FAERS Safety Report 7034104-4 (Version None)
Quarter: 2010Q4

REPORT INFORMATION
  Report Type: 
  Country: None (occurrence: None)
  Receive Date: 20101008
  Receipt Date: 20100928
  Transmission Date: 20110411
  Serious: Yes (Other)
  Sender: FDA-Public Use
  Company Number: US-ABBOTT-10P-163-0674144-00

PATIENT
  Sex: Male

DRUGS (2)
  1. HUMIRA [Suspect]
     Indication: CROHN'S DISEASE
     Dates: start: 20080601, end: 20090101
  2. HUMIRA [Suspect]
     Dates: start: 20100201

REACTIONS (1)
  - FISTULA [None]
